FAERS Safety Report 20609421 (Version 3)
Quarter: 2022Q1

REPORT INFORMATION
  Report Type: Report from Study
  Country: FR (occurrence: FR)
  Receive Date: 20220317
  Receipt Date: 20220328
  Transmission Date: 20220423
  Serious: Yes (Other)
  Sender: FDA-Public Use
  Company Number: FR-JNJFOC-20220321676

PATIENT

DRUGS (4)
  1. SIRTURO [Suspect]
     Active Substance: BEDAQUILINE FUMARATE
     Indication: Tuberculosis
     Route: 048
  2. DELAMANID [Suspect]
     Active Substance: DELAMANID
     Indication: Tuberculosis
     Route: 065
  3. LINEZOLID [Suspect]
     Active Substance: LINEZOLID
     Indication: Tuberculosis
     Route: 065
  4. CLOFAZIMINE [Suspect]
     Active Substance: CLOFAZIMINE
     Indication: Tuberculosis
     Route: 065

REACTIONS (6)
  - Tuberculosis [Unknown]
  - Neuropathy peripheral [Unknown]
  - Acute kidney injury [Unknown]
  - Myelosuppression [Unknown]
  - Electrocardiogram QT prolonged [Unknown]
  - Electrolyte depletion [Unknown]
